FAERS Safety Report 6788932-0 (Version None)
Quarter: 2010Q2

REPORT INFORMATION
  Report Type: 
  Country: None (occurrence: None)
  Receive Date: 20100623
  Receipt Date: 20080606
  Transmission Date: 20101027
  Serious: No
  Sender: FDA-Public Use
  Company Number: US-PFIZER INC-2008048737

PATIENT
  Age: 56 Year
  Sex: Female
  Weight: 56.818 kg

DRUGS (4)
  1. GENOTROPIN [Suspect]
     Indication: GROWTH HORMONE DEFICIENCY
  2. GENOTROPIN [Suspect]
     Indication: FATIGUE
  3. GENOTROPIN [Suspect]
     Indication: LYME DISEASE
  4. MANNITOL [Suspect]
     Dates: start: 20080101

REACTIONS (2)
  - HYPERSENSITIVITY [None]
  - PALPITATIONS [None]
